FAERS Safety Report 5723277 (Version 2)
Quarter: 2020Q3

REPORT INFORMATION
  Report Type: Spontaneous
  Country: FR (occurrence: FR)
  Receive Date: 20050126
  Receipt Date: 20050202
  Transmission Date: 20201104
  Serious: No
  Sender: FDA-Public Use
  Company Number: FR-MERCK-0501FRA00062

PATIENT
  Age: 46 Year
  Sex: Female

DRUGS (3)
  1. NOROXIN [Suspect]
     Active Substance: NORFLOXACIN
     Indication: PROPHYLAXIS
     Route: 048
     Dates: start: 200411, end: 200501
  2. FLUMEQUINE. [Suspect]
     Active Substance: FLUMEQUINE
     Indication: PROPHYLAXIS
     Route: 048
     Dates: start: 200501
  3. MAGNESIUM LACTATE TRIHYDRATE\PYRIDOXINE HYDROCHLORIDE [Concomitant]
     Active Substance: MAGNESIUM LACTATE TRIHYDRATE\PYRIDOXINE HYDROCHLORIDE
     Route: 048

REACTIONS (2)
  - Rash pruritic [Recovered/Resolved]
  - Dermatitis bullous [Not Recovered/Not Resolved]

NARRATIVE: CASE EVENT DATE: 20050101
